FAERS Safety Report 12873230 (Version 1)
Quarter: 2016Q4

REPORT INFORMATION
  Report Type: Spontaneous
  Country: DE (occurrence: DE)
  Receive Date: 20161021
  Receipt Date: 20161021
  Transmission Date: 20170207
  Serious: Yes (Death, Hospitalization)
  Sender: FDA-Public Use
  Company Number: DE-BAYER-2016-196169

PATIENT
  Age: 71 Year
  Sex: Male
  Weight: 144.99 kg

DRUGS (9)
  1. TORASEMID [Suspect]
     Active Substance: TORSEMIDE
     Dosage: 10 MG
  2. AQUAPHOR [Suspect]
     Active Substance: PETROLATUM
     Dosage: 20 MG
  3. MACITENTAN [Suspect]
     Active Substance: MACITENTAN
     Dosage: 10 MG
  4. METOPROLOL. [Concomitant]
     Active Substance: METOPROLOL
     Dosage: 95 MG
  5. ADEMPAS [Suspect]
     Active Substance: RIOCIGUAT
     Indication: PULMONARY ARTERIAL HYPERTENSION
     Dosage: 1.5 MG, TID
     Dates: start: 201606
  6. ADEMPAS [Suspect]
     Active Substance: RIOCIGUAT
     Indication: PULMONARY ARTERIAL HYPERTENSION
     Dosage: 2 MG, TID
     Dates: start: 201606
  7. DIGITOXIN [Concomitant]
     Active Substance: DIGITOXIN
     Dosage: UNK
  8. L-THYROXIN [Concomitant]
     Active Substance: LEVOTHYROXINE SODIUM
     Dosage: 100 UG
  9. PHENPROCOUMON [Concomitant]
     Active Substance: PHENPROCOUMON
     Dosage: UNK

REACTIONS (4)
  - Anaemia [Fatal]
  - Acute kidney injury [Fatal]
  - Right ventricular failure [Fatal]
  - Abnormal weight gain [None]

NARRATIVE: CASE EVENT DATE: 20160629
